FAERS Safety Report 23600904 (Version 16)
Quarter: 2025Q3

REPORT INFORMATION
  Report Type: Report from Study
  Country: US (occurrence: US)
  Receive Date: 20240306
  Receipt Date: 20250924
  Transmission Date: 20251021
  Serious: Yes (Other)
  Sender: TAKEDA
  Company Number: US-TAKEDA-2021TUS036855

PATIENT
  Age: 60 Year
  Sex: Female
  Weight: 83 kg

DRUGS (63)
  1. HUMAN IMMUNOGLOBULIN G [Suspect]
     Active Substance: HUMAN IMMUNOGLOBULIN G
     Indication: Immunodeficiency
     Dosage: 40 GRAM, Q4WEEKS
  2. HUMAN IMMUNOGLOBULIN G [Suspect]
     Active Substance: HUMAN IMMUNOGLOBULIN G
     Indication: Asthma
  3. PREDNISONE [Suspect]
     Active Substance: PREDNISONE
     Indication: Product used for unknown indication
  4. SYMBICORT [Suspect]
     Active Substance: BUDESONIDE\FORMOTEROL FUMARATE DIHYDRATE
     Indication: Product used for unknown indication
     Dosage: UNK UNK, QD
  5. CEFDINIR [Suspect]
     Active Substance: CEFDINIR
     Indication: Product used for unknown indication
  6. DOXYCYCLINE [Suspect]
     Active Substance: DOXYCYCLINE
     Indication: Sinusitis
  7. DUPIXENT [Suspect]
     Active Substance: DUPILUMAB
     Indication: Asthma
     Dosage: 300 MILLIGRAM, Q2WEEKS
  8. DUPIXENT [Suspect]
     Active Substance: DUPILUMAB
  9. ACETAMINOPHEN [Concomitant]
     Active Substance: ACETAMINOPHEN
  10. EPINEPHRINE [Concomitant]
     Active Substance: EPINEPHRINE
  11. FLUTICASONE PROPIONATE [Concomitant]
     Active Substance: FLUTICASONE PROPIONATE
  12. NYSTATIN [Concomitant]
     Active Substance: NYSTATIN
  13. SINGULAIR [Concomitant]
     Active Substance: MONTELUKAST SODIUM
  14. SODIUM CHLORIDE [Concomitant]
     Active Substance: SODIUM CHLORIDE
  15. SYNTHROID [Concomitant]
     Active Substance: LEVOTHYROXINE SODIUM
  16. ALBUTEROL SULFATE [Concomitant]
     Active Substance: ALBUTEROL SULFATE
  17. Goody^s extra strength [Concomitant]
  18. PROTONIX [Concomitant]
     Active Substance: PANTOPRAZOLE SODIUM
  19. BREZTRI [Concomitant]
     Active Substance: BUDESONIDE\FORMOTEROL\GLYCOPYRROLATE
  20. LEVSIN [Concomitant]
     Active Substance: HYOSCYAMINE SULFATE
  21. ROPINIROLE HYDROCHLORIDE [Concomitant]
     Active Substance: ROPINIROLE HYDROCHLORIDE
  22. ASTEPRO [Concomitant]
     Active Substance: AZELASTINE HYDROCHLORIDE
  23. LIDOCAINE [Concomitant]
     Active Substance: LIDOCAINE
  24. BUDESONIDE [Concomitant]
     Active Substance: BUDESONIDE
  25. PREVACID [Concomitant]
     Active Substance: LANSOPRAZOLE
  26. DIPHENHYDRAMINE HYDROCHLORIDE [Concomitant]
     Active Substance: DIPHENHYDRAMINE HYDROCHLORIDE
  27. VITAMIN D3 [Concomitant]
     Active Substance: CHOLECALCIFEROL
  28. MELOXICAM [Concomitant]
     Active Substance: MELOXICAM
  29. ASPIRIN [Concomitant]
     Active Substance: ASPIRIN
  30. NITROGLYCERIN [Concomitant]
     Active Substance: NITROGLYCERIN
  31. ROSUVASTATIN CALCIUM [Concomitant]
     Active Substance: ROSUVASTATIN CALCIUM
  32. AZITHROMYCIN [Concomitant]
     Active Substance: AZITHROMYCIN
  33. MUCINEX [Concomitant]
     Active Substance: GUAIFENESIN
  34. VALSARTAN [Concomitant]
     Active Substance: VALSARTAN
  35. DIPHENHYDRAMINE [Concomitant]
     Active Substance: DIPHENHYDRAMINE
  36. NASONEX [Concomitant]
     Active Substance: MOMETASONE FUROATE
  37. VENTOLIN [Concomitant]
     Active Substance: ALBUTEROL SULFATE
  38. PANTOPRAZOLE SODIUM [Concomitant]
     Active Substance: PANTOPRAZOLE SODIUM
  39. MYLANTA MAXIMUM STRENGTH [Concomitant]
     Active Substance: ALUMINUM HYDROXIDE\DIMETHICONE\MAGNESIUM HYDROXIDE
  40. CIMETIDINE [Concomitant]
     Active Substance: CIMETIDINE
  41. SODIUM CHLORIDE [Concomitant]
     Active Substance: SODIUM CHLORIDE
  42. SODIUM CHLORIDE [Concomitant]
     Active Substance: SODIUM CHLORIDE
  43. GENTAMICIN SULFATE [Concomitant]
     Active Substance: GENTAMICIN SULFATE
  44. ACTEMRA [Concomitant]
     Active Substance: TOCILIZUMAB
  45. MOUNJARO [Concomitant]
     Active Substance: TIRZEPATIDE
  46. TIRZEPATIDE [Concomitant]
     Active Substance: TIRZEPATIDE
  47. FORMOTEROL FUMARATE [Concomitant]
     Active Substance: FORMOTEROL FUMARATE
  48. GLYCOPYRROLATE [Concomitant]
     Active Substance: GLYCOPYRROLATE
  49. AZELASTINE HYDROCHLORIDE AND FLUTICASONE PROPIONATE [Concomitant]
     Active Substance: AZELASTINE HYDROCHLORIDE\FLUTICASONE PROPIONATE
  50. HYOSCYAMINE SULFATE [Concomitant]
     Active Substance: HYOSCYAMINE SULFATE
  51. ALBUTEROL [Concomitant]
     Active Substance: ALBUTEROL
  52. ASPIRIN [Concomitant]
     Active Substance: ASPIRIN
  53. LEVOTHYROXINE SODIUM [Concomitant]
     Active Substance: LEVOTHYROXINE SODIUM
  54. CAFFEINE [Concomitant]
     Active Substance: CAFFEINE
  55. ACETAMINOPHEN [Concomitant]
     Active Substance: ACETAMINOPHEN
  56. MONTELUKAST SODIUM [Concomitant]
     Active Substance: MONTELUKAST SODIUM
  57. MOMETASONE FUROATE [Concomitant]
     Active Substance: MOMETASONE FUROATE
  58. ALBUTEROL SULFATE [Concomitant]
     Active Substance: ALBUTEROL SULFATE
  59. ZOLPIDEM TARTRATE [Concomitant]
     Active Substance: ZOLPIDEM TARTRATE
  60. LANSOPRAZOLE [Concomitant]
     Active Substance: LANSOPRAZOLE
  61. DOXYCYCLINE HYCLATE [Concomitant]
     Active Substance: DOXYCYCLINE HYCLATE
  62. GUAIFENESIN [Concomitant]
     Active Substance: GUAIFENESIN
  63. OMALIZUMAB [Concomitant]
     Active Substance: OMALIZUMAB

REACTIONS (52)
  - Pseudomonas infection [Unknown]
  - Corynebacterium infection [Unknown]
  - Polymyalgia rheumatica [Unknown]
  - Steroid diabetes [Unknown]
  - Glycosylated haemoglobin increased [Unknown]
  - Hepatic enzyme increased [Unknown]
  - Temperature intolerance [Unknown]
  - Skin swelling [Unknown]
  - Urticaria [Recovered/Resolved]
  - Photosensitivity reaction [Unknown]
  - Pruritus [Recovered/Resolved]
  - Erythema [Unknown]
  - Bronchitis [Unknown]
  - COVID-19 [Unknown]
  - Respiratory tract infection [Recovering/Resolving]
  - Animal bite [Unknown]
  - Gastroenteritis viral [Recovered/Resolved]
  - Dyspnoea exertional [Unknown]
  - Pain in jaw [Unknown]
  - Gastrooesophageal reflux disease [Unknown]
  - Post procedural complication [Unknown]
  - Sinus pain [Recovered/Resolved]
  - Staphylococcal infection [Unknown]
  - Drug eruption [Unknown]
  - Productive cough [Unknown]
  - Infection [Unknown]
  - Product availability issue [Unknown]
  - Product use in unapproved indication [Unknown]
  - Peripheral swelling [Recovered/Resolved]
  - Giant cell arteritis [Unknown]
  - Antibody test abnormal [Unknown]
  - Postoperative wound infection [Unknown]
  - Ocular hyperaemia [Unknown]
  - Eye irritation [Unknown]
  - Oropharyngeal discomfort [Unknown]
  - Sinusitis bacterial [Unknown]
  - Oral candidiasis [Recovered/Resolved]
  - Sinusitis [Recovering/Resolving]
  - Wheezing [Unknown]
  - Rash papular [Unknown]
  - Blood pressure increased [Unknown]
  - Rash [Unknown]
  - Influenza like illness [Unknown]
  - Cough [Unknown]
  - Dyspnoea [Unknown]
  - Chest discomfort [Unknown]
  - Arthralgia [Unknown]
  - Infusion site pain [Unknown]
  - Pyrexia [Unknown]
  - Nausea [Unknown]
  - Headache [Unknown]
  - Fatigue [Unknown]

NARRATIVE: CASE EVENT DATE: 20190927
